FAERS Safety Report 6968966-3 (Version None)
Quarter: 2010Q3

REPORT INFORMATION
  Report Type: 
  Country: None (occurrence: None)
  Receive Date: 20100903
  Receipt Date: 20100903
  Transmission Date: 20110219
  Serious: Yes (Hospitalization)
  Sender: FDA-Public Use
  Company Number: None

PATIENT
  Age: 85 Year
  Sex: Male
  Weight: 62.14 kg

DRUGS (1)
  1. DOXAZOSIN MESYLATE [Suspect]
     Indication: BENIGN PROSTATIC HYPERPLASIA
     Dosage: 2 MG EVERY DAY PO
     Route: 048
     Dates: start: 20071105, end: 20080903

REACTIONS (5)
  - BLOOD CREATININE INCREASED [None]
  - DIZZINESS [None]
  - DIZZINESS POSTURAL [None]
  - HAEMATOCRIT DECREASED [None]
  - VISION BLURRED [None]
